FAERS Safety Report 14328047 (Version 1)
Quarter: 2017Q4

REPORT INFORMATION
  Report Type: Spontaneous
  Country: GB (occurrence: GB)
  Receive Date: 20171227
  Receipt Date: 20171227
  Transmission Date: 20180321
  Serious: Yes (Life-Threatening, Other)
  Sender: FDA-Public Use
  Company Number: GB-TEVA-2017-GB-836562

PATIENT
  Age: 77 Year
  Sex: Male
  Weight: 120 kg

DRUGS (1)
  1. CO-AMOXICLAV [Suspect]
     Active Substance: AMOXICILLIN\CLAVULANIC ACID
     Indication: SEPSIS

REACTIONS (9)
  - Acute kidney injury [Unknown]
  - Hypotension [Unknown]
  - Pulseless electrical activity [Unknown]
  - Hyponatraemia [Unknown]
  - Acidosis [Unknown]
  - Malaise [Unknown]
  - Circulatory collapse [Unknown]
  - Diarrhoea [Unknown]
  - Cardiac arrest [Unknown]
